FAERS Safety Report 8300894-3 (Version None)
Quarter: 2012Q2

REPORT INFORMATION
  Report Type: 
  Country: None (occurrence: None)
  Receive Date: 20120418
  Receipt Date: 20120418
  Transmission Date: 20120825
  Serious: Yes (Hospitalization)
  Sender: FDA-Public Use
  Company Number: None

PATIENT
  Age: 81 Year
  Sex: Female
  Weight: 77.5651 kg

DRUGS (1)
  1. PRADAXA [Suspect]
     Indication: ATRIAL FIBRILLATION
     Dosage: 1 TAB TWICE DAILY
     Dates: start: 20120312

REACTIONS (4)
  - HAEMORRHOIDS [None]
  - HAEMATOCHEZIA [None]
  - ABDOMINAL DISCOMFORT [None]
  - DYSPEPSIA [None]
